FAERS Safety Report 7735126-8 (Version None)
Quarter: 2011Q3

REPORT INFORMATION
  Report Type: 
  Country: None (occurrence: None)
  Receive Date: 20110907
  Receipt Date: 20110906
  Transmission Date: 20111222
  Serious: Yes (Other)
  Sender: FDA-Public Use
  Company Number: US-PFIZER INC-2011208586

PATIENT
  Sex: Female
  Weight: 91 kg

DRUGS (3)
  1. CHANTIX [Suspect]
     Indication: SMOKING CESSATION THERAPY
     Dosage: UNK
     Dates: start: 20060101
  2. VENLAFAXINE HYDROCHLORIDE [Concomitant]
     Indication: DEPRESSION
     Dosage: 150 MG, 1X/DAY
  3. CHANTIX [Suspect]
     Dosage: 0.5 MG, 2X/DAY
     Dates: start: 20110902, end: 20110906

REACTIONS (7)
  - DRUG DISPENSING ERROR [None]
  - IMPULSIVE BEHAVIOUR [None]
  - AGGRESSION [None]
  - FRUSTRATION [None]
  - ANXIETY [None]
  - PHYSICAL ASSAULT [None]
  - AGITATION [None]
